FAERS Safety Report 4765444-7 (Version None)
Quarter: 2005Q3

REPORT INFORMATION
  Report Type: 
  Country: None (occurrence: None)
  Receive Date: 20050908
  Receipt Date: 20050826
  Transmission Date: 20060218
  Serious: Yes (Other)
  Sender: FDA-Public Use
  Company Number: DE-2005-015215

PATIENT
  Age: 16 Year
  Sex: Female
  Weight: 54 kg

DRUGS (2)
  1. MIRANOVA (21) (ETHINYLESTTRADIOL, LEVONORGESTREL) COATED TABLET [Suspect]
     Indication: ORAL CONTRACEPTION
     Dosage: 1 TAB(S), 1X/DAY, ORAL
     Route: 048
     Dates: start: 20050201, end: 20050728
  2. ANTI-HISTAMINE TAB [Concomitant]

REACTIONS (3)
  - BLOOD PRESSURE INCREASED [None]
  - PERIPHERAL ISCHAEMIA [None]
  - SUDDEN HEARING LOSS [None]
